FAERS Safety Report 19093165 (Version 1)
Quarter: 2021Q2

REPORT INFORMATION
  Report Type: Spontaneous
  Country: AT (occurrence: AT)
  Receive Date: 20210405
  Receipt Date: 20210405
  Transmission Date: 20210717
  Serious: Yes (Hospitalization)
  Sender: FDA-Public Use
  Company Number: NVSC2021AT072177

PATIENT
  Sex: Female

DRUGS (2)
  1. MEKINIST [Suspect]
     Active Substance: TRAMETINIB DIMETHYL SULFOXIDE
     Indication: THYROID CANCER
     Dosage: 2 MG (1?0?0)
     Route: 065
  2. TAFINLAR [Suspect]
     Active Substance: DABRAFENIB MESYLATE
     Indication: THYROID CANCER
     Dosage: 75 MG (2?0?2)
     Route: 065

REACTIONS (2)
  - General physical health deterioration [Unknown]
  - Off label use [Unknown]

NARRATIVE: CASE EVENT DATE: 202103
